FAERS Safety Report 18879532 (Version 1)
Quarter: 2021Q1

REPORT INFORMATION
  Report Type: Spontaneous
  Country: US (occurrence: US)
  Receive Date: 20210211
  Receipt Date: 20210211
  Transmission Date: 20210420
  Serious: Yes (Other)
  Sender: FDA-Public Use
  Company Number: US-STRIDES ARCOLAB LIMITED-2020SP014378

PATIENT
  Age: 71 Year
  Sex: Male

DRUGS (3)
  1. GABAPENTIN. [Suspect]
     Active Substance: GABAPENTIN
     Indication: RADICULOPATHY
     Dosage: UNK
     Route: 065
  2. PREGABALIN. [Suspect]
     Active Substance: PREGABALIN
     Indication: RADICULOPATHY
     Dosage: UNK
     Route: 065
  3. OXYMORPHONE [Concomitant]
     Active Substance: OXYMORPHONE
     Indication: RADICULOPATHY
     Dosage: UNK, PRN
     Route: 065

REACTIONS (1)
  - Treatment failure [Unknown]
